FAERS Safety Report 23798100 (Version 1)
Quarter: 2024Q2

REPORT INFORMATION
  Report Type: Spontaneous
  Country: BR (occurrence: BR)
  Receive Date: 20240430
  Receipt Date: 20240430
  Transmission Date: 20240716
  Serious: Yes (Death, Hospitalization)
  Sender: FDA-Public Use
  Company Number: BR-STRIDES ARCOLAB LIMITED-2024SP004971

PATIENT
  Age: 14 Year
  Sex: Female

DRUGS (8)
  1. CYCLOSPORINE [Suspect]
     Active Substance: CYCLOSPORINE
     Indication: Immunosuppressant drug therapy
     Dosage: UNK
     Route: 065
  2. CYCLOSPORINE [Suspect]
     Active Substance: CYCLOSPORINE
     Indication: Heart transplant
  3. SIROLIMUS [Suspect]
     Active Substance: SIROLIMUS
     Indication: Immunosuppressant drug therapy
     Dosage: UNK
     Route: 065
  4. SIROLIMUS [Suspect]
     Active Substance: SIROLIMUS
     Indication: Heart transplant
  5. METHYLPREDNISOLONE [Concomitant]
     Active Substance: METHYLPREDNISOLONE
     Indication: Immunosuppressant drug therapy
     Dosage: UNK (8 HIGH-DOSE)
     Route: 065
  6. METHYLPREDNISOLONE [Concomitant]
     Active Substance: METHYLPREDNISOLONE
     Indication: Heart transplant
  7. Immunoglobulin [Concomitant]
     Indication: Immunosuppressant drug therapy
     Dosage: UNK (DOSE: 5 DOSE)
     Route: 042
  8. Immunoglobulin [Concomitant]
     Indication: Heart transplant

REACTIONS (2)
  - Heart transplant rejection [Fatal]
  - COVID-19 [Unknown]

NARRATIVE: CASE EVENT DATE: 20210505
